FAERS Safety Report 8856468 (Version 1)
Quarter: 2012Q4

REPORT INFORMATION
  Report Type: Spontaneous
  Country: FR (occurrence: None)
  Receive Date: 20121019
  Receipt Date: 20121019
  Transmission Date: 20130627
  Serious: Yes (Hospitalization)
  Sender: FDA-Public Use
  Company Number: FR-SEPTODONT-201200791

PATIENT
  Age: 78 Year
  Sex: Male

DRUGS (5)
  1. SEPTOCAINE 4% [Suspect]
     Indication: LOCAL ANAESTHESIA
     Dosage: cartridge Dental
     Route: 004
     Dates: start: 20090615, end: 20090615
  2. HYDREA [Concomitant]
  3. TERCIAN (CYAMEMAZINE) [Concomitant]
  4. STABLON [Concomitant]
  5. APROVEL (IRBESARTAN) [Concomitant]

REACTIONS (6)
  - Malaise [None]
  - Convulsion [None]
  - Cardiovascular insufficiency [None]
  - Erythema [None]
  - Blood pressure decreased [None]
  - Oxygen saturation decreased [None]
